FAERS Safety Report 10903262 (Version 3)
Quarter: 2015Q4

REPORT INFORMATION
  Report Type: Spontaneous
  Country: GB (occurrence: GB)
  Receive Date: 20150311
  Receipt Date: 20151008
  Transmission Date: 20160304
  Serious: Yes (Other)
  Sender: FDA-Public Use
  Company Number: GB-ROCHE-1548273

PATIENT
  Sex: Female

DRUGS (1)
  1. HERCEPTIN [Suspect]
     Active Substance: TRASTUZUMAB
     Indication: PRODUCT USED FOR UNKNOWN INDICATION
     Dosage: CYCLE 14
     Route: 058

REACTIONS (10)
  - Rhinorrhoea [Unknown]
  - Pain in extremity [Unknown]
  - Blood pressure increased [Unknown]
  - Fatigue [Unknown]
  - Mouth ulceration [Unknown]
  - Skin discolouration [Unknown]
  - Breast oedema [Unknown]
  - Blister [Unknown]
  - Middle insomnia [Unknown]
  - Eyelid pain [Unknown]
